FAERS Safety Report 8493220-0 (Version None)
Quarter: 2012Q3

REPORT INFORMATION
  Report Type: 
  Country: None (occurrence: None)
  Receive Date: 20120706
  Receipt Date: 20120628
  Transmission Date: 20120928
  Serious: Yes (Hospitalization)
  Sender: FDA-Public Use
  Company Number: PHHY2012FR056991

PATIENT
  Sex: Male

DRUGS (8)
  1. TRIVASTAL [Concomitant]
  2. ACETAMINOPHEN [Concomitant]
  3. ALFUZOSIN HCL [Concomitant]
  4. LEVOTHYROXINE SODIUM [Concomitant]
  5. LASIX [Concomitant]
  6. IMATINIB MESYLATE [Suspect]
     Indication: CHRONIC MYELOID LEUKAEMIA
     Dosage: 400 MG, DAILY
     Dates: start: 20051117
  7. IRBESARTAN [Concomitant]
  8. PENTOXIFYLLINE [Concomitant]

REACTIONS (7)
  - INFLAMMATION [None]
  - VENOUS INJURY [None]
  - SKIN ULCER [None]
  - SKIN MACERATION [None]
  - OEDEMA PERIPHERAL [None]
  - LEFT VENTRICULAR HYPERTROPHY [None]
  - WOUND [None]
